FAERS Safety Report 24688387 (Version 3)
Quarter: 2025Q1

REPORT INFORMATION
  Report Type: Report from Study
  Country: CA (occurrence: CA)
  Receive Date: 20241202
  Receipt Date: 20250121
  Transmission Date: 20250408
  Serious: Yes (Other)
  Sender: SANDOZ
  Company Number: CA-SANDOZ-SDZ2024CA099308

PATIENT
  Sex: Male

DRUGS (2)
  1. HYRIMOZ [Suspect]
     Active Substance: ADALIMUMAB-ADAZ
     Indication: Colitis ulcerative
     Dosage: 40 MG, Q2W, PRE FILLED SYRINGE
     Route: 058
     Dates: start: 20220621
  2. HYRIMOZ [Suspect]
     Active Substance: ADALIMUMAB-ADAZ
     Dosage: 40 MG, Q2W, PRE FILLED SYRINGE
     Route: 058
     Dates: start: 2024

REACTIONS (3)
  - Hernia [Unknown]
  - Colitis ulcerative [Recovering/Resolving]
  - Inappropriate schedule of product administration [Unknown]
